FAERS Safety Report 9384334 (Version 3)
Quarter: 2014Q2

REPORT INFORMATION
  Report Type: Report from Study
  Country: MY (occurrence: MY)
  Receive Date: 20130705
  Receipt Date: 20140620
  Transmission Date: 20141212
  Serious: Yes (Death, Other)
  Sender: FDA-Public Use
  Company Number: PHHY2013MY069005

PATIENT
  Age: 45 Year
  Sex: Female

DRUGS (7)
  1. GLIVEC [Suspect]
     Indication: GASTROINTESTINAL STROMAL TUMOUR
     Dosage: 400 MG, UNK
     Dates: end: 20130626
  2. GLIVEC [Suspect]
     Dosage: 300 MG, QD
     Dates: start: 20130628
  3. GLIVEC [Suspect]
     Dosage: 600 MG, UNK
  4. DAILY MULTIVITAMIN [Concomitant]
     Dosage: ONE TABLET, QD
  5. RANITIDINE [Concomitant]
     Dosage: 150 MG, BID
  6. MAXOLON [Concomitant]
     Dosage: 10 MG, TID
  7. MORPHINE [Concomitant]
     Dosage: 5 MG, FOUR WEEKLY PER PEN

REACTIONS (5)
  - Gastrointestinal stromal tumour [Fatal]
  - Post procedural fistula [Unknown]
  - General physical health deterioration [Unknown]
  - Hypophagia [Unknown]
  - Asthenia [Unknown]
